FAERS Safety Report 7952851-4 (Version None)
Quarter: 2011Q4

REPORT INFORMATION
  Report Type: 
  Country: None (occurrence: None)
  Receive Date: 20111129
  Receipt Date: 20111111
  Transmission Date: 20120403
  Serious: Yes (Death)
  Sender: FDA-Public Use
  Company Number: AU-2011-02-001526

PATIENT
  Age: 19 Year
  Sex: Male

DRUGS (1)
  1. DOXYCYCLINE [Suspect]
     Indication: DERMATITIS
     Dosage: 100 MG ORAL
     Route: 048
     Dates: start: 20111129

REACTIONS (1)
  - COMPLETED SUICIDE [None]
